FAERS Safety Report 4626467-1 (Version None)
Quarter: 2005Q1

REPORT INFORMATION
  Report Type: 
  Country: None (occurrence: None)
  Receive Date: 20050330
  Receipt Date: 20050316
  Transmission Date: 20050727
  Serious: Yes (Hospitalization)
  Sender: FDA-Public Use
  Company Number: US_0501110536

PATIENT
  Age: 60 Year
  Sex: Female

DRUGS (14)
  1. FORTEO [Suspect]
     Indication: OSTEOPOROSIS
     Dosage: 20 UG DAY
     Dates: start: 20040626
  2. CYMBALTA [Suspect]
     Indication: DEPRESSION
     Dosage: 60 MG DAY
     Dates: start: 20040811
  3. NEXIUM [Concomitant]
  4. COPAXONE [Concomitant]
  5. ESTRADIOL [Concomitant]
  6. RITALIN [Concomitant]
  7. PROGESTERONE [Concomitant]
  8. ZANAFLEX [Concomitant]
  9. ULTRAM [Concomitant]
  10. XANAX (ALPRAZOLAM DUM) [Concomitant]
  11. ZELNORM [Concomitant]
  12. VITAMIN E [Concomitant]
  13. MIRALAX [Concomitant]
  14. SEROQUEL [Concomitant]

REACTIONS (3)
  - GASTROOESOPHAGEAL REFLUX DISEASE [None]
  - HIATUS HERNIA [None]
  - PHARMACEUTICAL PRODUCT COMPLAINT [None]
